FAERS Safety Report 4861000-0 (Version None)
Quarter: 2005Q4

REPORT INFORMATION
  Report Type: 
  Country: None (occurrence: None)
  Receive Date: 20051216
  Receipt Date: 20051201
  Transmission Date: 20060501
  Serious: Yes (Hospitalization)
  Sender: FDA-Public Use
  Company Number: DE200512001230

PATIENT
  Age: 66 Year
  Sex: Female
  Weight: 75 kg

DRUGS (4)
  1. YENTREVE(DULOXETINE HYDROCHLORIDE) CAPSULES [Suspect]
     Indication: URINARY INCONTINENCE
     Dosage: 40 MG, DAILY (1/D), ORAL
     Route: 048
     Dates: start: 20050530
  2. JODTHYROX (LEVOTHYROXINE SODIUM, POTASSIUM IODIDE) [Concomitant]
  3. BISO LICH            /GFR/(BISOPROLOL FUMARATE) [Concomitant]
  4. ATMADISC (FLUTICASONE PROPIONATE, SALMETEROL XINAFOATE) [Concomitant]

REACTIONS (3)
  - DIAPHRAGMATIC OPERATION [None]
  - HYSTERECTOMY [None]
  - SALPINGO-OOPHORECTOMY BILATERAL [None]
